FAERS Safety Report 21327310 (Version 1)
Quarter: 2022Q3

REPORT INFORMATION
  Report Type: Spontaneous
  Country: US (occurrence: None)
  Receive Date: 20220912
  Receipt Date: 20220912
  Transmission Date: 20221026
  Serious: Yes (Hospitalization)
  Sender: FDA-Public Use
  Company Number: None

PATIENT
  Sex: Male

DRUGS (13)
  1. HUMIRA [Suspect]
     Active Substance: ADALIMUMAB
     Indication: Rheumatoid arthritis
     Dosage: OTHER QUANTITY : 40MG/0.4ML;?OTHER FREQUENCY : EVERY 14 DAYS;?
     Route: 058
     Dates: start: 20220112
  2. ACETAMIN TAB [Concomitant]
  3. CYCLOBENZAPR TAB [Concomitant]
  4. DICLOFENAC [Concomitant]
     Active Substance: DICLOFENAC
  5. DOCUSATE SOD CAP [Concomitant]
  6. FOLIC ACID TAB [Concomitant]
  7. GABAPENTIN [Concomitant]
     Active Substance: GABAPENTIN
  8. IBUPROFEN TAB [Concomitant]
  9. METHOCARBAM TAB [Concomitant]
  10. METHOTREXATE [Concomitant]
     Active Substance: METHOTREXATE
  11. OXYCONTIN TAB CR [Concomitant]
  12. PREDNISONE [Concomitant]
     Active Substance: PREDNISONE
  13. SENNA-PLUS TAB [Concomitant]

REACTIONS (8)
  - Condition aggravated [None]
  - Loss of personal independence in daily activities [None]
  - Joint swelling [None]
  - Infection [None]
  - Arthralgia [None]
  - Therapy interrupted [None]
  - Product use issue [None]
  - Surgery [None]
